FAERS Safety Report 20922070 (Version 2)
Quarter: 2022Q2

REPORT INFORMATION
  Report Type: Report from Study
  Country: KR (occurrence: KR)
  Receive Date: 20220607
  Receipt Date: 20220609
  Transmission Date: 20220721
  Serious: Yes (Death, Other)
  Sender: FDA-Public Use
  Company Number: KR-NOVARTISPH-NVSC2022KR100023

PATIENT
  Age: 59 Year
  Sex: Female
  Weight: 69.8 kg

DRUGS (15)
  1. ALPELISIB [Suspect]
     Active Substance: ALPELISIB
     Indication: PIK3CA-activated mutation
     Dosage: 300 MG
     Route: 048
     Dates: start: 20211118, end: 20220110
  2. ALPELISIB [Suspect]
     Active Substance: ALPELISIB
     Indication: Breast cancer metastatic
  3. FUROSEMIDE [Concomitant]
     Active Substance: FUROSEMIDE
     Indication: Product used for unknown indication
     Dosage: 40 MG, QD
     Route: 048
     Dates: start: 20211118, end: 20211213
  4. SPIRONOLACTONE [Concomitant]
     Active Substance: SPIRONOLACTONE
     Indication: Product used for unknown indication
     Dosage: 25 MG, QD
     Route: 048
     Dates: start: 20211118, end: 20211213
  5. PREGABALIN [Concomitant]
     Active Substance: PREGABALIN
     Indication: Product used for unknown indication
     Dosage: 300 MG, BID
     Route: 048
     Dates: start: 20211118, end: 20211213
  6. TELMISARTAN [Concomitant]
     Active Substance: TELMISARTAN
     Indication: Product used for unknown indication
     Dosage: 40 MG, QD
     Route: 048
     Dates: start: 20211118, end: 20220111
  7. MOSAPRIDE [Concomitant]
     Active Substance: MOSAPRIDE
     Indication: Product used for unknown indication
     Dosage: 5 MG, BID
     Route: 048
     Dates: start: 20211118, end: 20220111
  8. PANCREATIN [Concomitant]
     Active Substance: PANCRELIPASE
     Indication: Product used for unknown indication
     Dosage: 300 MG, BID
     Route: 048
     Dates: start: 20211118, end: 20220111
  9. ESOMEPRAZOLE [Concomitant]
     Active Substance: ESOMEPRAZOLE
     Indication: Product used for unknown indication
     Dosage: 20 MG, QD
     Route: 048
     Dates: start: 20211118, end: 20220111
  10. CEFTRIAXONE [Concomitant]
     Active Substance: CEFTRIAXONE
     Indication: Product used for unknown indication
     Dosage: 2 G, QD
     Route: 042
     Dates: start: 20211214, end: 20211220
  11. ACETAMINOPHEN [Concomitant]
     Active Substance: ACETAMINOPHEN
     Indication: Product used for unknown indication
     Dosage: 650 MG, BID
     Route: 048
     Dates: start: 20211123, end: 20220111
  12. TRAMADOL [Concomitant]
     Active Substance: TRAMADOL
     Indication: Product used for unknown indication
     Dosage: 75 MG, BID
     Route: 048
     Dates: start: 20211123, end: 20220111
  13. NAPROXEN [Concomitant]
     Active Substance: NAPROXEN
     Indication: Product used for unknown indication
     Dosage: 500 MG, BID (PRN)
     Route: 048
     Dates: start: 20211123, end: 20211213
  14. ALMAGATE [Concomitant]
     Active Substance: ALMAGATE
     Indication: Product used for unknown indication
     Dosage: 500 MG, BID (PRN)
     Route: 048
     Dates: start: 20211123, end: 20211213
  15. METOCLOPRAMIDE [Concomitant]
     Active Substance: METOCLOPRAMIDE
     Indication: Product used for unknown indication
     Dosage: 5 MG, QD (PRN)
     Route: 048
     Dates: start: 20211123, end: 20211213

REACTIONS (4)
  - Malignant neoplasm progression [Fatal]
  - Ascites [Not Recovered/Not Resolved]
  - Hyperglycaemia [Recovered/Resolved]
  - Diarrhoea [Recovered/Resolved]

NARRATIVE: CASE EVENT DATE: 20211118
